FAERS Safety Report 18992076 (Version 2)
Quarter: 2021Q1

REPORT INFORMATION
  Report Type: Report from Study
  Country: US (occurrence: US)
  Receive Date: 20210310
  Receipt Date: 20210323
  Transmission Date: 20210420
  Serious: Yes (Death, Hospitalization)
  Sender: FDA-Public Use
  Company Number: US-PFIZER INC-2018128216

PATIENT
  Age: 18 Year
  Sex: Female
  Weight: 48.9 kg

DRUGS (4)
  1. CYTARABINE. [Suspect]
     Active Substance: CYTARABINE
     Indication: ACUTE MYELOID LEUKAEMIA
     Dosage: 70MG X 5, ON DAY 1 (AND DAYS 4, 8, 11,15 SINCE PT HAS CNS DISEASE AT DX)
     Route: 037
     Dates: start: 20070127, end: 20070206
  2. VP?16 [Suspect]
     Active Substance: ETOPOSIDE
     Indication: ACUTE MYELOID LEUKAEMIA
     Dosage: 150 MG, CYCLIC (ON DAYS 1 THROUGH 5)
     Route: 042
     Dates: start: 20070127, end: 20070131
  3. DAUNORUBICIN [Suspect]
     Active Substance: DAUNORUBICIN
     Indication: ACUTE MYELOID LEUKAEMIA
     Dosage: 75 MG CYCLIC (ON DAYS 1,3,5)
     Route: 042
     Dates: start: 20070127, end: 20070131
  4. CYTARABINE. [Suspect]
     Active Substance: CYTARABINE
     Dosage: 150 MG, CYCLIC (2X/DAY, ON DAYS 1 THROUGH 10)
     Dates: start: 20070127, end: 20070206

REACTIONS (4)
  - Disseminated intravascular coagulation [Unknown]
  - Pulmonary haemorrhage [Fatal]
  - Neutropenic infection [Unknown]
  - Platelet count decreased [Unknown]

NARRATIVE: CASE EVENT DATE: 20070127
